FAERS Safety Report 23888885 (Version 1)
Quarter: 2024Q2

REPORT INFORMATION
  Report Type: Spontaneous
  Country: IT (occurrence: IT)
  Receive Date: 20240523
  Receipt Date: 20240523
  Transmission Date: 20240716
  Serious: Yes (Hospitalization, Other)
  Sender: FDA-Public Use
  Company Number: None

PATIENT
  Age: 68 Year
  Sex: Female

DRUGS (1)
  1. PEMBROLIZUMAB [Suspect]
     Active Substance: PEMBROLIZUMAB
     Indication: Lung neoplasm malignant
     Dosage: 200 MG EVERY 21 DAYS
     Route: 042

REACTIONS (3)
  - Neuritis [Recovered/Resolved]
  - Pulmonary oedema [Recovered/Resolved]
  - Interstitial lung disease [Recovered/Resolved]
